FAERS Safety Report 6138688-X (Version None)
Quarter: 2009Q1

REPORT INFORMATION
  Report Type: 
  Country: None (occurrence: None)
  Receive Date: 20090331
  Receipt Date: 20090325
  Transmission Date: 20090719
  Serious: Yes (Other)
  Sender: FDA-Public Use
  Company Number: FI-ABBOTT-09P-055-0560389-00

PATIENT
  Sex: Male

DRUGS (1)
  1. HUMIRA [Suspect]
     Indication: CROHN'S DISEASE
     Dosage: 80-40MG, EVERY OTHER WEEK
     Dates: start: 20080501, end: 20090202

REACTIONS (1)
  - ANAL CANCER STAGE 0 [None]
